FAERS Safety Report 8133178-7 (Version None)
Quarter: 2012Q1

REPORT INFORMATION
  Report Type: 
  Country: None (occurrence: None)
  Receive Date: 20120213
  Receipt Date: 20120208
  Transmission Date: 20120608
  Serious: Yes (Other)
  Sender: FDA-Public Use
  Company Number: PHHY2012BR011358

PATIENT
  Age: 81 Year
  Sex: Male

DRUGS (2)
  1. DIOVAN HCT [Suspect]
     Dosage: 0.5 (160/12.5) DF, DAILY
  2. DIOVAN HCT [Suspect]
     Indication: HYPERTENSION
     Dosage: 1 DF (160/12.5 MG), DAILY

REACTIONS (3)
  - HYPOTENSION [None]
  - CEREBROVASCULAR ACCIDENT [None]
  - WRONG TECHNIQUE IN DRUG USAGE PROCESS [None]
